FAERS Safety Report 14407344 (Version 1)
Quarter: 2018Q1

REPORT INFORMATION
  Report Type: Report from Study
  Country: None (occurrence: BE)
  Receive Date: 20180118
  Receipt Date: 20180118
  Transmission Date: 20180509
  Serious: Yes (Death)
  Sender: FDA-Public Use
  Company Number: BE-ABBVIE-18P-013-2225408-00

PATIENT
  Age: 47 Year
  Sex: Male
  Weight: 90 kg

DRUGS (5)
  1. VENCLYXTO [Suspect]
     Active Substance: VENETOCLAX
     Indication: MANTLE CELL LYMPHOMA
     Route: 048
  2. VENCLYXTO [Suspect]
     Active Substance: VENETOCLAX
     Route: 048
  3. VENCLYXTO [Suspect]
     Active Substance: VENETOCLAX
     Route: 048
  4. VENCLYXTO [Suspect]
     Active Substance: VENETOCLAX
     Route: 048
  5. VENCLYXTO [Suspect]
     Active Substance: VENETOCLAX
     Route: 048

REACTIONS (1)
  - Disease progression [Fatal]

NARRATIVE: CASE EVENT DATE: 20171216
